FAERS Safety Report 8367273-4 (Version None)
Quarter: 2012Q2

REPORT INFORMATION
  Report Type: 
  Country: None (occurrence: None)
  Receive Date: 20120517
  Receipt Date: 20120507
  Transmission Date: 20120825
  Serious: Yes (Hospitalization)
  Sender: FDA-Public Use
  Company Number: AR-BRISTOL-MYERS SQUIBB COMPANY-16576746

PATIENT
  Sex: Female

DRUGS (1)
  1. YERVOY [Suspect]
     Dosage: DID NOT RECEIVED THE SECOND INFUSION

REACTIONS (5)
  - INFLAMMATION [None]
  - ASTHENIA [None]
  - NAUSEA [None]
  - VOMITING [None]
  - BLOOD PRESSURE INCREASED [None]
